FAERS Safety Report 5113199-9 (Version None)
Quarter: 2006Q3

REPORT INFORMATION
  Report Type: 
  Country: None (occurrence: None)
  Receive Date: 20060920
  Receipt Date: 20050905
  Transmission Date: 20061208
  Serious: Yes (Hospitalization, Other)
  Sender: FDA-Public Use
  Company Number: US200609000979

PATIENT
  Age: 66 Year
  Sex: Female

DRUGS (6)
  1. HUMULIN R [Suspect]
     Dates: start: 19710101
  2. HUMULIN N [Suspect]
     Dates: start: 19710101
  3. HUMALOG [Suspect]
     Dosage: SEE IMAGE
     Dates: start: 20040101
  4. HUMALOG [Suspect]
     Dosage: SEE IMAGE
     Dates: start: 20040101
  5. HUMALOG [Suspect]
  6. LANTUS [Concomitant]

REACTIONS (16)
  - BLOOD GLUCOSE DECREASED [None]
  - BLOOD GLUCOSE INCREASED [None]
  - CATARACT [None]
  - CEREBROVASCULAR ACCIDENT [None]
  - DIABETIC RETINOPATHY [None]
  - DISCOMFORT [None]
  - DRUG INEFFECTIVE [None]
  - EYE HAEMORRHAGE [None]
  - GLAUCOMA [None]
  - HIP FRACTURE [None]
  - HYPERTENSION [None]
  - INSOMNIA [None]
  - PHARMACEUTICAL PRODUCT COMPLAINT [None]
  - SLEEP APNOEA SYNDROME [None]
  - UNEQUAL LIMB LENGTH [None]
  - VISUAL ACUITY REDUCED [None]
